FAERS Safety Report 11912209 (Version 2)
Quarter: 2016Q4

REPORT INFORMATION
  Report Type: Report from Study
  Country: BR (occurrence: BR)
  Receive Date: 20160112
  Receipt Date: 20161020
  Transmission Date: 20170206
  Serious: Yes (Life-Threatening, Hospitalization)
  Sender: FDA-Public Use
  Company Number: BR-ROCHE-1692386

PATIENT
  Age: 84 Year
  Sex: Female
  Weight: 50 kg

DRUGS (2)
  1. XOLAIR [Suspect]
     Active Substance: OMALIZUMAB
     Indication: ASTHMA
     Route: 058
     Dates: start: 20131101
  2. XOLAIR [Suspect]
     Active Substance: OMALIZUMAB
     Route: 058
     Dates: start: 20151105

REACTIONS (5)
  - Concomitant disease aggravated [Unknown]
  - Body height decreased [Unknown]
  - Asthma [Recovered/Resolved]
  - Lung disorder [Unknown]
  - Apparent death [Unknown]

NARRATIVE: CASE EVENT DATE: 201510
